FAERS Safety Report 17941073 (Version 2)
Quarter: 2020Q3

REPORT INFORMATION
  Report Type: Spontaneous
  Country: US (occurrence: US)
  Receive Date: 20200625
  Receipt Date: 20200910
  Transmission Date: 20201103
  Serious: No
  Sender: FDA-Public Use
  Company Number: US-SA-2020SA153685

PATIENT

DRUGS (5)
  1. DUPIXENT [Suspect]
     Active Substance: DUPILUMAB
     Indication: ASTHMA
     Dosage: 300 MG, QOW
     Route: 058
     Dates: start: 202003
  2. DUPIXENT [Suspect]
     Active Substance: DUPILUMAB
     Indication: NASAL POLYPS
  3. PROAIR HFA [Concomitant]
     Active Substance: ALBUTEROL SULFATE
  4. VITAMIN D3 [Concomitant]
     Active Substance: CHOLECALCIFEROL
  5. AMBIEN [Concomitant]
     Active Substance: ZOLPIDEM TARTRATE
     Dosage: UNK

REACTIONS (8)
  - Wheezing [Unknown]
  - Throat irritation [Unknown]
  - Injection site swelling [Recovered/Resolved]
  - Injection site bruising [Recovered/Resolved]
  - Pain [Recovered/Resolved]
  - Stress [Unknown]
  - Injection site erythema [Recovered/Resolved]
  - Fatigue [Recovered/Resolved]

NARRATIVE: CASE EVENT DATE: 2020
